FAERS Safety Report 5907916-5 (Version None)
Quarter: 2008Q4

REPORT INFORMATION
  Report Type: 
  Country: None (occurrence: None)
  Receive Date: 20081003
  Receipt Date: 20080922
  Transmission Date: 20090506
  Serious: Yes (Life-Threatening, Hospitalization)
  Sender: FDA-Public Use
  Company Number: FR-ELI_LILLY_AND_COMPANY-FR200809004664

PATIENT
  Sex: Female

DRUGS (3)
  1. ZYPREXA [Suspect]
     Dosage: 20 MG, DAILY (1/D)
     Route: 048
     Dates: start: 20080811, end: 20080818
  2. LOXAPINE HCL [Concomitant]
     Indication: MANIA
     Dosage: 50 D/F, 3/D
     Dates: start: 20080808, end: 20080810
  3. TERCIAN [Concomitant]
     Indication: MANIA
     Dosage: 50 D/F, 3/D
     Dates: start: 20080808, end: 20080810

REACTIONS (6)
  - CYTOLYTIC HEPATITIS [None]
  - FEAR [None]
  - NEUROLEPTIC MALIGNANT SYNDROME [None]
  - PARANOIA [None]
  - RENAL IMPAIRMENT [None]
  - RHABDOMYOLYSIS [None]
